APPROVED DRUG PRODUCT: MINOXIDIL (FOR WOMEN)
Active Ingredient: MINOXIDIL
Strength: 2%
Dosage Form/Route: SOLUTION;TOPICAL
Application: A218175 | Product #001
Applicant: TARO PHARMACEUTICAL INDUSTRIES LTD
Approved: Nov 26, 2024 | RLD: No | RS: No | Type: OTC